FAERS Safety Report 20589756 (Version 2)
Quarter: 2022Q1

REPORT INFORMATION
  Report Type: Spontaneous
  Country: CN (occurrence: None)
  Receive Date: 20220314
  Receipt Date: 20220329
  Transmission Date: 20220423
  Serious: Yes (Hospitalization)
  Sender: FDA-Public Use
  Company Number: 2022A108286

PATIENT
  Age: 67 Year
  Sex: Male
  Weight: 75 kg

DRUGS (2)
  1. SYMBICORT [Suspect]
     Active Substance: BUDESONIDE\FORMOTEROL FUMARATE DIHYDRATE
     Indication: Asthma
     Dosage: 320 UG, TWICE DAILY, ONCE IN THE MORNING AND ONCE IN THE EVENING UNKNOWN
     Route: 055
     Dates: start: 202105
  2. SYMBICORT [Suspect]
     Active Substance: BUDESONIDE\FORMOTEROL FUMARATE DIHYDRATE
     Indication: Asthma
     Dosage: 160 UG, ONCE DAILY UNKNOWN
     Route: 055

REACTIONS (2)
  - Bronchopulmonary aspergillosis [Unknown]
  - Therapy change [Unknown]

NARRATIVE: CASE EVENT DATE: 20220101
